FAERS Safety Report 12290450 (Version 5)
Quarter: 2016Q3

REPORT INFORMATION
  Report Type: Report from Study
  Country: US (occurrence: US)
  Receive Date: 20160421
  Receipt Date: 20160803
  Transmission Date: 20161109
  Serious: Yes (Life-Threatening, Hospitalization, Other)
  Sender: FDA-Public Use
  Company Number: PHEH2016US009358

PATIENT
  Age: 48 Year
  Sex: Female
  Weight: 91 kg

DRUGS (1)
  1. GILENYA [Suspect]
     Active Substance: FINGOLIMOD HYDROCHLORIDE
     Indication: RELAPSING-REMITTING MULTIPLE SCLEROSIS
     Dosage: 0.5 MG, QD
     Route: 048
     Dates: start: 20121119, end: 20151123

REACTIONS (11)
  - Loss of consciousness [Unknown]
  - Brain abscess [Recovered/Resolved with Sequelae]
  - T-lymphocyte count decreased [Unknown]
  - Mental disorder [Unknown]
  - Lymphopenia [Unknown]
  - Thrombocytopenia [Unknown]
  - Apparent death [Unknown]
  - Meningitis bacterial [Unknown]
  - Partial seizures with secondary generalisation [Unknown]
  - Amnesia [Unknown]
  - Leukocytosis [Unknown]

NARRATIVE: CASE EVENT DATE: 201511
